FAERS Safety Report 7494712-3 (Version None)
Quarter: 2011Q2

REPORT INFORMATION
  Report Type: 
  Country: None (occurrence: None)
  Receive Date: 20110520
  Receipt Date: 20091031
  Transmission Date: 20111010
  Serious: Yes (Death, Other)
  Sender: FDA-Public Use
  Company Number: US-BAYER-200938243NA

PATIENT
  Age: 72 Year
  Sex: Male
  Weight: 85 kg

DRUGS (26)
  1. FUROSEMIDE [Concomitant]
     Dosage: 40 MG
     Route: 042
     Dates: start: 20010706
  2. TRASYLOL [Suspect]
     Indication: CORONARY ARTERY BYPASS
     Dosage: 1 ML INITIAL TEST DOSE
     Route: 042
     Dates: start: 20010724
  3. TOPROL-XL [Concomitant]
     Indication: HYPERTENSION
     Dosage: 50 MG, QID
     Route: 048
  4. HYDROCHLOROTHIAZIDE [Concomitant]
     Indication: HYPERTENSION
     Dosage: 12.5
  5. INSULIN [Concomitant]
     Dosage: UNK
     Route: 042
     Dates: start: 20010724
  6. ZINACEF [Concomitant]
     Dosage: 1.5 GRAMS TIMES 2
     Dates: start: 20010724
  7. METOPROLOL SUCCINATE [Concomitant]
     Dosage: 25 MG, TID
     Route: 048
  8. LIPITOR [Concomitant]
     Indication: BLOOD CHOLESTEROL INCREASED
     Dosage: 10 MG, QD
  9. LABETALOL [Concomitant]
     Dosage: 15 MG HOURLY AS NEEDED
     Route: 042
  10. CALCIUM CHLORIDE [Concomitant]
     Dosage: 1000 MG
     Dates: start: 20010724
  11. AMRINONE [Concomitant]
     Dosage: UNK
     Dates: start: 20010724
  12. MAGNESIUM SULFATE [Concomitant]
     Dosage: 4 GRAMS
     Dates: start: 20010724
  13. DIOVAN [Concomitant]
     Indication: HYPERTENSION
     Dosage: 80
  14. MONOPRIL [Concomitant]
     Dosage: 10 MG, QD
     Route: 048
  15. FUROSEMIDE [Concomitant]
     Dosage: 40 MG, QD
     Route: 048
  16. VERSED [Concomitant]
     Dosage: 5 MG
     Dates: start: 20010724
  17. HEPARIN [Concomitant]
     Dosage: 27,000 UNITS
     Dates: start: 20010724
  18. TRASYLOL [Suspect]
     Indication: MITRAL VALVE REPLACEMENT
     Dosage: 200 ML LOADING DOSE
     Route: 042
  19. TRASYLOL [Suspect]
     Indication: MITRAL VALVE REPAIR
  20. LISINOPRIL [Concomitant]
     Dosage: 10 MG, QD
     Route: 048
  21. LOPRESSOR [Concomitant]
     Dosage: UNK
     Route: 048
     Dates: start: 20010712
  22. NITROGLYCERIN [Concomitant]
     Dosage: 50 MG IN 250 CC
     Dates: start: 20010724
  23. LEVAQUIN [Concomitant]
     Dosage: 500 MG, QD
     Route: 048
  24. ACETYLSALICYLIC ACID SRT [Concomitant]
     Dosage: 81 MG, QD
     Route: 048
  25. FENTANYL [Concomitant]
     Dosage: 25 MCG TIMES 3
     Dates: start: 20010724
  26. NEO-SYNEPHRINOL [Concomitant]
     Dosage: 30 MG IN 250 CC
     Dates: start: 20010724

REACTIONS (8)
  - ANHEDONIA [None]
  - ANXIETY [None]
  - FEAR [None]
  - PAIN [None]
  - INJURY [None]
  - DEPRESSION [None]
  - UNEVALUABLE EVENT [None]
  - RENAL FAILURE [None]
